FAERS Safety Report 7996773-1 (Version None)
Quarter: 2011Q4

REPORT INFORMATION
  Report Type: 
  Country: None (occurrence: None)
  Receive Date: 20111221
  Receipt Date: 20111213
  Transmission Date: 20120403
  Serious: Yes (Congenital Anomaly, Other)
  Sender: FDA-Public Use
  Company Number: US-UCBSA-8053098

PATIENT
  Sex: Female

DRUGS (4)
  1. KEPPRA [Suspect]
     Indication: EPILEPSY
     Dosage: DOSE FREQ.: DAILY
     Route: 064
     Dates: end: 20090807
  2. MULTI-VITAMINS [Concomitant]
     Indication: PREGNANCY
     Route: 064
     Dates: start: 20081229
  3. CALCIUM SUPPLEMENT [Concomitant]
     Indication: BLOOD CALCIUM
     Route: 064
  4. ZERVALX [Concomitant]
     Indication: PREGNANCY
     Route: 064
     Dates: start: 20090109

REACTIONS (9)
  - NEUROFIBROMATOSIS [None]
  - FOETAL GROWTH RESTRICTION [None]
  - SMALL FOR DATES BABY [None]
  - SKIN HYPERPIGMENTATION [None]
  - SPEECH DISORDER [None]
  - BREECH PRESENTATION [None]
  - FOETAL EXPOSURE DURING PREGNANCY [None]
  - AVERSION [None]
  - PILONIDAL CYST CONGENITAL [None]
